FAERS Safety Report 8828888 (Version 1)
Quarter: 2012Q4

REPORT INFORMATION
  Report Type: 
  Country: US (occurrence: US)
  Receive Date: 20121008
  Receipt Date: 20121008
  Transmission Date: 20130627
  Serious: Yes (Other)
  Sender: FDA-Public Use
  Company Number: US-PFIZER INC-2012247830

PATIENT
  Age: 65 Year
  Sex: Female
  Weight: 132 kg

DRUGS (7)
  1. LYRICA [Suspect]
     Indication: NERVOUS SYSTEM DISORDER
     Dosage: 75 mg, 2x/day
     Dates: end: 201201
  2. LYRICA [Suspect]
     Indication: PAIN
     Dosage: 75 mg, 2x/day
     Dates: start: 201202
  3. CELEBREX [Suspect]
     Indication: ARTHRALGIA
     Dosage: UNK, daily
     Dates: end: 201201
  4. CELEBREX [Suspect]
     Dosage: UNK, daily
     Dates: start: 201202
  5. VICODIN ES [Concomitant]
     Indication: PAIN
     Dosage: UNK, as needed
  6. VICODIN ES [Concomitant]
     Dosage: UNK, every 4 hrs
  7. VICODIN ES [Concomitant]
     Dosage: UNK, as needed

REACTIONS (5)
  - Musculoskeletal disorder [Unknown]
  - Arthralgia [Unknown]
  - Paraesthesia [Unknown]
  - Pain in extremity [Unknown]
  - Hypoaesthesia [Unknown]
